FAERS Safety Report 5114841-9 (Version None)
Quarter: 2006Q3

REPORT INFORMATION
  Report Type: 
  Country: None (occurrence: None)
  Receive Date: 20060926
  Receipt Date: 20050128
  Transmission Date: 20061208
  Serious: Yes (Hospitalization)
  Sender: FDA-Public Use
  Company Number: FR-BAYER-200510067BFR

PATIENT
  Age: 34 Year
  Sex: Male

DRUGS (10)
  1. MOXIFLOXACIN HYDROCHLORIDE [Suspect]
     Indication: TUBERCULOSIS
     Dosage: UNIT DOSE: 400 MG
     Route: 048
     Dates: start: 20041202, end: 20041203
  2. ACUPAN [Suspect]
     Indication: UNEVALUABLE EVENT
     Route: 042
     Dates: start: 20041201, end: 20041203
  3. RIFATER [Suspect]
     Indication: PULMONARY TUBERCULOSIS
     Route: 048
     Dates: start: 20041130, end: 20041204
  4. TOPALGIC [Concomitant]
     Indication: UNEVALUABLE EVENT
     Route: 048
     Dates: start: 20041201, end: 20041202
  5. MYAMBUTOL [Concomitant]
     Indication: PULMONARY TUBERCULOSIS
     Route: 048
     Dates: start: 20041130
  6. VITAMINES B1-B6 [Concomitant]
     Indication: UNEVALUABLE EVENT
     Route: 048
  7. PRIMPERAN TAB [Concomitant]
     Indication: UNEVALUABLE EVENT
  8. AUGMENTIN [Concomitant]
     Indication: UNEVALUABLE EVENT
  9. ACETAMINOPHEN [Concomitant]
     Indication: UNEVALUABLE EVENT
  10. TAZOCILLINE [Concomitant]
     Indication: UNEVALUABLE EVENT
     Dates: start: 20041203, end: 20041210

REACTIONS (2)
  - DELIRIUM [None]
  - NEUROPATHY PERIPHERAL [None]
